FAERS Safety Report 7722227-3 (Version None)
Quarter: 2011Q3

REPORT INFORMATION
  Report Type: 
  Country: None (occurrence: None)
  Receive Date: 20110831
  Receipt Date: 20110824
  Transmission Date: 20111222
  Serious: Yes (Other)
  Sender: FDA-Public Use
  Company Number: SG-PFIZER INC-2011195824

PATIENT
  Age: 23 Year
  Sex: Male

DRUGS (1)
  1. CLINDAMYCIN HCL [Suspect]

REACTIONS (3)
  - NAUSEA [None]
  - DIZZINESS [None]
  - VOMITING [None]
